FAERS Safety Report 8575567-2 (Version None)
Quarter: 2012Q3

REPORT INFORMATION
  Report Type: 
  Country: None (occurrence: None)
  Receive Date: 20120807
  Receipt Date: 20120724
  Transmission Date: 20120928
  Serious: Yes (Hospitalization, Other)
  Sender: FDA-Public Use
  Company Number: US-NOVEN-12US005008

PATIENT
  Sex: Female

DRUGS (3)
  1. MORPHINE SULFATE [Concomitant]
     Indication: BREAKTHROUGH PAIN
     Dosage: UNK
     Route: 048
  2. FENTANYL [Suspect]
     Dosage: 100 UG/HR X2, Q 3DAYS
     Route: 062
     Dates: start: 19970101, end: 20110823
  3. FENTANYL [Suspect]
     Indication: PAIN
     Dosage: 100 UG/HR X3, Q 3DAYS
     Route: 062
     Dates: start: 19970101

REACTIONS (5)
  - NERVE INJURY [None]
  - CONVULSION [None]
  - INFECTION [None]
  - DECUBITUS ULCER [None]
  - LOSS OF CONSCIOUSNESS [None]
